FAERS Safety Report 5782146-9 (Version None)
Quarter: 2008Q2

REPORT INFORMATION
  Report Type: 
  Country: None (occurrence: None)
  Receive Date: 20080623
  Receipt Date: 20080619
  Transmission Date: 20081010
  Serious: Yes (Hospitalization)
  Sender: FDA-Public Use
  Company Number: GB-WYE-G01725508

PATIENT
  Sex: Male

DRUGS (1)
  1. TEMSIROLIMUS [Suspect]
     Dosage: 4 CYCLES, DOSE UNKNOWN
     Dates: start: 20080101

REACTIONS (3)
  - OEDEMA PERIPHERAL [None]
  - PALMAR-PLANTAR ERYTHRODYSAESTHESIA SYNDROME [None]
  - PNEUMONIA [None]
